FAERS Safety Report 5970882-0 (Version None)
Quarter: 2008Q4

REPORT INFORMATION
  Report Type: 
  Country: None (occurrence: None)
  Receive Date: 20081128
  Receipt Date: 20081117
  Transmission Date: 20090506
  Serious: Yes (Hospitalization, Other)
  Sender: FDA-Public Use
  Company Number: PHHY2008FR29005

PATIENT

DRUGS (2)
  1. STALEVO 100 [Suspect]
     Indication: PARKINSON'S DISEASE
  2. EXELON [Concomitant]
     Dosage: UNK

REACTIONS (5)
  - DRUG LEVEL INCREASED [None]
  - HALLUCINATION [None]
  - MALAISE [None]
  - MASS [None]
  - METANEPHRINE URINE INCREASED [None]
